FAERS Safety Report 5504147-8 (Version None)
Quarter: 2007Q4

REPORT INFORMATION
  Report Type: 
  Country: None (occurrence: None)
  Receive Date: 20071101
  Receipt Date: 20071030
  Transmission Date: 20080405
  Serious: Yes (Death, Life-Threatening, Hospitalization)
  Sender: FDA-Public Use
  Company Number: A0690545A

PATIENT
  Age: 41 Year
  Sex: Female

DRUGS (2)
  1. ARIXTRA [Suspect]
     Dosage: 2.5MG PER DAY
     Route: 058
     Dates: end: 20071024
  2. NO CONCURRENT MEDICATION [Concomitant]

REACTIONS (1)
  - OPERATIVE HAEMORRHAGE [None]
